FAERS Safety Report 19241353 (Version 1)
Quarter: 2021Q2

REPORT INFORMATION
  Report Type: Spontaneous
  Country: IN (occurrence: IN)
  Receive Date: 20210511
  Receipt Date: 20210511
  Transmission Date: 20210717
  Serious: Yes (Life-Threatening, Hospitalization, Other)
  Sender: FDA-Public Use
  Company Number: IN-LUPIN PHARMACEUTICALS INC.-2021-06657

PATIENT
  Age: 30 Year
  Sex: Male

DRUGS (6)
  1. METOCLOPRAMIDE. [Interacting]
     Active Substance: METOCLOPRAMIDE
     Indication: HEADACHE
  2. ONDANSETRON [Interacting]
     Active Substance: ONDANSETRON
     Indication: INSOMNIA
  3. TRAMADOL. [Interacting]
     Active Substance: TRAMADOL
     Indication: INSOMNIA
     Dosage: UNK (TAKEN DURING THE PRECEDING 7 DAYS)
     Route: 065
  4. TRAMADOL. [Interacting]
     Active Substance: TRAMADOL
     Indication: HEADACHE
  5. ONDANSETRON [Interacting]
     Active Substance: ONDANSETRON
     Indication: HEADACHE
     Dosage: UNK (TAKEN DURING THE PRECEDING 7 DAYS)
     Route: 065
  6. METOCLOPRAMIDE. [Suspect]
     Active Substance: METOCLOPRAMIDE
     Indication: INSOMNIA
     Dosage: UNK (TAKEN DURING THE PRECEDING 7 DAYS)
     Route: 065

REACTIONS (8)
  - Rhabdomyolysis [Recovered/Resolved]
  - Potentiating drug interaction [Recovered/Resolved]
  - Serotonin syndrome [Recovered/Resolved]
  - Myoglobinuria [Recovered/Resolved]
  - Toxicity to various agents [Recovered/Resolved]
  - Acute kidney injury [Recovered/Resolved]
  - Renal tubular injury [Recovered/Resolved]
  - Loss of consciousness [Recovered/Resolved]
